FAERS Safety Report 7861636-9 (Version None)
Quarter: 2011Q4

REPORT INFORMATION
  Report Type: 
  Country: None (occurrence: None)
  Receive Date: 20111027
  Receipt Date: 20111012
  Transmission Date: 20120403
  Serious: Yes (Other)
  Sender: FDA-Public Use
  Company Number: PHHY2011SI90081

PATIENT
  Age: 43 Year
  Sex: Male

DRUGS (3)
  1. BROMAZEPAM [Suspect]
  2. ZOLPIDEM [Suspect]
  3. ACETAMINOPHEN [Suspect]
     Dosage: 10 G, UNK
     Route: 048

REACTIONS (5)
  - DRUG LEVEL INCREASED [None]
  - SUICIDE ATTEMPT [None]
  - RESTLESSNESS [None]
  - TRANSAMINASES INCREASED [None]
  - TOXICITY TO VARIOUS AGENTS [None]
